FAERS Safety Report 6787796-9 (Version None)
Quarter: 2010Q2

REPORT INFORMATION
  Report Type: 
  Country: None (occurrence: None)
  Receive Date: 20100623
  Receipt Date: 20070914
  Transmission Date: 20101027
  Serious: Yes (Other)
  Sender: FDA-Public Use
  Company Number: US-PFIZER INC-2007067497

PATIENT
  Sex: Female
  Weight: 73.9 kg

DRUGS (2)
  1. DEPO-PROVERA SUSPENSION/INJ [Suspect]
     Indication: CONTRACEPTION
     Dosage: FIRST INJECTION/MONTHLY
     Route: 030
     Dates: start: 20060801, end: 20060801
  2. DEPO-PROVERA SUSPENSION/INJ [Suspect]
     Dosage: LAST INJECTION/MONTHLY
     Route: 030
     Dates: start: 20070701, end: 20070701

REACTIONS (4)
  - INAPPROPRIATE SCHEDULE OF DRUG ADMINISTRATION [None]
  - OSTEOPENIA [None]
  - ROAD TRAFFIC ACCIDENT [None]
  - WEIGHT INCREASED [None]
